FAERS Safety Report 6283569-4 (Version None)
Quarter: 2009Q3

REPORT INFORMATION
  Report Type: 
  Country: None (occurrence: None)
  Receive Date: 20090724
  Receipt Date: 20090514
  Transmission Date: 20100115
  Serious: Yes (Death, Hospitalization)
  Sender: FDA-Public Use
  Company Number: DE-ALEXION-A200900346

PATIENT

DRUGS (2)
  1. SOLIRIS [Suspect]
     Indication: PAROXYSMAL NOCTURNAL HAEMOGLOBINURIA
     Dosage: 900 MG, UNK
     Route: 042
     Dates: start: 20080601, end: 20081201
  2. SOLIRIS [Suspect]
     Dosage: 900 MG, UNK
     Route: 042
     Dates: start: 20090201, end: 20090301

REACTIONS (3)
  - MULTI-ORGAN FAILURE [None]
  - STAPHYLOCOCCAL SEPSIS [None]
  - URINARY TRACT INFECTION [None]
